FAERS Safety Report 6443391-2 (Version None)
Quarter: 2009Q4

REPORT INFORMATION
  Report Type: 
  Country: None (occurrence: None)
  Receive Date: 20091113
  Receipt Date: 20091103
  Transmission Date: 20100525
  Serious: Yes (Hospitalization)
  Sender: FDA-Public Use
  Company Number: 230892J07USA

PATIENT
  Age: 27 Year
  Sex: Female

DRUGS (3)
  1. REBIF [Suspect]
     Indication: MULTIPLE SCLEROSIS
     Dosage: 44 MCG, 3 IN 1 WEEKS, SUBCUTANEOUS;NOT REPORTED, NOT REPORTED, NOT REPORTED; 44 MCG, 3  IN 1 WEEKS S
     Route: 058
     Dates: start: 20071029, end: 20071128
  2. REBIF [Suspect]
     Indication: MULTIPLE SCLEROSIS
     Dosage: 44 MCG, 3 IN 1 WEEKS, SUBCUTANEOUS;NOT REPORTED, NOT REPORTED, NOT REPORTED; 44 MCG, 3  IN 1 WEEKS S
     Route: 058
     Dates: start: 20090306, end: 20091001
  3. REBIF [Suspect]
     Indication: MULTIPLE SCLEROSIS
     Dosage: 44 MCG, 3 IN 1 WEEKS, SUBCUTANEOUS;NOT REPORTED, NOT REPORTED, NOT REPORTED; 44 MCG, 3  IN 1 WEEKS S
     Route: 058
     Dates: start: 20091028

REACTIONS (6)
  - BLOOD PRESSURE INCREASED [None]
  - GAIT DISTURBANCE [None]
  - GASTROOESOPHAGEAL REFLUX DISEASE [None]
  - HYPOAESTHESIA [None]
  - NERVOUSNESS [None]
  - PAIN [None]
